FAERS Safety Report 15207790 (Version 1)
Quarter: 2018Q3

REPORT INFORMATION
  Report Type: Spontaneous
  Country: US (occurrence: US)
  Receive Date: 20180727
  Receipt Date: 20180727
  Transmission Date: 20181010
  Serious: No
  Sender: FDA-Public Use
  Company Number: US-ALLERGAN-1812601US

PATIENT
  Age: 63 Year
  Sex: Male
  Weight: 95.24 kg

DRUGS (1)
  1. ANDRODERM [Suspect]
     Active Substance: TESTOSTERONE
     Indication: HORMONE REPLACEMENT THERAPY
     Dosage: 4 MG, QD
     Route: 062
     Dates: start: 201802

REACTIONS (1)
  - Renal pain [Recovered/Resolved]

NARRATIVE: CASE EVENT DATE: 201803
